FAERS Safety Report 20580264 (Version 4)
Quarter: 2022Q4

REPORT INFORMATION
  Report Type: Spontaneous
  Country: PL (occurrence: PL)
  Receive Date: 20220310
  Receipt Date: 20221014
  Transmission Date: 20230113
  Serious: Yes (Other)
  Sender: FDA-Public Use
  Company Number: PL-SUN PHARMACEUTICAL INDUSTRIES LTD-2022RR-329390

PATIENT
  Age: 40 Year
  Sex: Female

DRUGS (9)
  1. ATORVASTATIN [Interacting]
     Active Substance: ATORVASTATIN
     Indication: Dyslipidaemia
     Dosage: 20 MILLIGRAM, QD
     Route: 065
  2. FLUCONAZOLE [Interacting]
     Active Substance: FLUCONAZOLE
     Indication: Dysuria
     Dosage: 200 MILLIGRAM, DAILY
     Route: 048
  3. FLUCONAZOLE [Interacting]
     Active Substance: FLUCONAZOLE
     Indication: Vaginal discharge
  4. QUETIAPINE [Interacting]
     Active Substance: QUETIAPINE
     Indication: Depression
     Dosage: 150 MILLIGRAM, DAILY
     Route: 065
  5. QUETIAPINE [Interacting]
     Active Substance: QUETIAPINE
     Dosage: 200 MILLIGRAM, DAILY
     Route: 065
  6. CRANBERRY [Interacting]
     Active Substance: CRANBERRY
     Indication: Product used for unknown indication
     Dosage: UNK
     Route: 065
  7. PAROXETINE [Concomitant]
     Active Substance: PAROXETINE
     Indication: Depression
     Dosage: 20 MILLIGRAM, DAILY
     Route: 065
  8. PAROXETINE [Concomitant]
     Active Substance: PAROXETINE
     Dosage: 40 MILLIGRAM, DAILY
     Route: 065
  9. BIOTIN [Concomitant]
     Active Substance: BIOTIN
     Indication: Alopecia
     Dosage: 20 MILLIGRAM, DAILY
     Route: 065

REACTIONS (6)
  - Thrombocytopenia [Recovering/Resolving]
  - Leukopenia [Recovering/Resolving]
  - Hypothyroidism [Recovering/Resolving]
  - Drug level increased [Unknown]
  - Drug interaction [Unknown]
  - Epistaxis [Recovering/Resolving]
